FAERS Safety Report 4326754-0 (Version None)
Quarter: 2004Q1

REPORT INFORMATION
  Report Type: 
  Country: None (occurrence: None)
  Receive Date: 20040322
  Receipt Date: 20040115
  Transmission Date: 20041129
  Serious: No
  Sender: FDA-Public Use
  Company Number: PHEH2004US00892

PATIENT
  Sex: Female

DRUGS (2)
  1. ZOMETA [Suspect]
     Indication: METASTASES TO BONE
     Dosage: QMO, INTRAVEOUS
     Route: 042
     Dates: start: 20031101
  2. IRESSA [Concomitant]

REACTIONS (2)
  - RASH [None]
  - SKIN DISCOLOURATION [None]
